FAERS Safety Report 6723369-1 (Version None)
Quarter: 2010Q2

REPORT INFORMATION
  Report Type: 
  Country: None (occurrence: None)
  Receive Date: 20100513
  Receipt Date: 20100504
  Transmission Date: 20101027
  Serious: Yes (Hospitalization, Other)
  Sender: FDA-Public Use
  Company Number: GB-ASTRAZENECA-2010SE16151

PATIENT
  Age: 73 Year
  Sex: Male

DRUGS (4)
  1. ZOLADEX [Suspect]
     Indication: PROSTATE CANCER
     Route: 058
     Dates: start: 20091201
  2. SINEMET [Concomitant]
     Indication: PARKINSON'S DISEASE
     Route: 065
  3. SINEMET [Concomitant]
     Route: 065
  4. SINEMET [Concomitant]
     Route: 065

REACTIONS (1)
  - PARKINSON'S DISEASE [None]
